FAERS Safety Report 14684415 (Version 2)
Quarter: 2018Q2

REPORT INFORMATION
  Report Type: Report from Study
  Country: BR (occurrence: BR)
  Receive Date: 20180327
  Receipt Date: 20180404
  Transmission Date: 20180711
  Serious: Yes (Hospitalization, Other)
  Sender: FDA-Public Use
  Company Number: PHHY2018BR043688

PATIENT
  Age: 60 Year
  Sex: Male
  Weight: 72 kg

DRUGS (2)
  1. DIOVAN HCT [Suspect]
     Active Substance: HYDROCHLOROTHIAZIDE\VALSARTAN
     Indication: MYOCARDIAL INFARCTION
     Dosage: 1 DF (HYDROCHLOROTHIAZIDE 12.5, VALSARTAN 160 MG), QD
     Route: 048
     Dates: start: 2004, end: 20180214
  2. CIPIDE [Concomitant]
     Indication: BLOOD CHOLESTEROL INCREASED
     Dosage: 1 DF, QD 1 WEEK AGO
     Route: 065

REACTIONS (21)
  - Abdominal pain [Recovering/Resolving]
  - Vomiting [Recovering/Resolving]
  - Hypophagia [Unknown]
  - Lymphocytic hypophysitis [Recovering/Resolving]
  - Malaise [Recovering/Resolving]
  - Cardiac failure congestive [Recovering/Resolving]
  - Fatigue [Recovering/Resolving]
  - Hypotension [Recovering/Resolving]
  - Myocardial infarction [Recovered/Resolved with Sequelae]
  - Cardiac failure [Not Recovered/Not Resolved]
  - Dyspnoea [Recovering/Resolving]
  - Weight decreased [Recovering/Resolving]
  - Hiatus hernia [Recovered/Resolved]
  - Peripheral swelling [Recovering/Resolving]
  - Cholecystitis [Recovering/Resolving]
  - Blood uric acid increased [Recovering/Resolving]
  - Cardiac disorder [Recovered/Resolved]
  - Cardiomegaly [Recovering/Resolving]
  - Swelling [Recovered/Resolved]
  - Pulmonary oedema [Recovered/Resolved]
  - Post procedural complication [Unknown]

NARRATIVE: CASE EVENT DATE: 2004
